FAERS Safety Report 18610088 (Version 2)
Quarter: 2021Q1

REPORT INFORMATION
  Report Type: Spontaneous
  Country: US (occurrence: US)
  Receive Date: 20201214
  Receipt Date: 20210108
  Transmission Date: 20210419
  Serious: No
  Sender: FDA-Public Use
  Company Number: US-MYLANLABS-2020M1099054

PATIENT
  Sex: Female
  Weight: 73 kg

DRUGS (4)
  1. CLONIDINE TRANSDERMAL SYSTEM [Suspect]
     Active Substance: CLONIDINE
     Indication: HYPERTENSION
     Dosage: UNK
     Route: 062
  2. LASIX [Concomitant]
     Active Substance: FUROSEMIDE
  3. CLONIDINE. [Concomitant]
     Active Substance: CLONIDINE
     Dosage: UNK
  4. BYSTOLIC [Concomitant]
     Active Substance: NEBIVOLOL HYDROCHLORIDE
     Dosage: 10 MILLIGRAM, BID

REACTIONS (4)
  - Drug ineffective [Not Recovered/Not Resolved]
  - Product use issue [Not Recovered/Not Resolved]
  - Application site pain [Not Recovered/Not Resolved]
  - Application site pruritus [Not Recovered/Not Resolved]
